FAERS Safety Report 21797644 (Version 1)
Quarter: 2022Q4

REPORT INFORMATION
  Report Type: Report from Study
  Country: BE (occurrence: BE)
  Receive Date: 20221230
  Receipt Date: 20221230
  Transmission Date: 20230113
  Serious: Yes (Other)
  Sender: FDA-Public Use
  Company Number: BE-BRISTOL-MYERS SQUIBB COMPANY-2022-152510

PATIENT

DRUGS (14)
  1. DEXAMETHASONE [Suspect]
     Active Substance: DEXAMETHASONE
     Indication: Product used for unknown indication
     Dosage: 20 MG, 1 DOSE WEEKLY, REASON FOR DOSE ADJUSTED: NO
     Route: 048
     Dates: start: 20190731, end: 20191022
  2. DEXAMETHASONE [Suspect]
     Active Substance: DEXAMETHASONE
     Dosage: 20 MG, 1 DOSE WEEKLY, REASON FOR DOSE ADJUSTED: NO
     Route: 048
     Dates: start: 20191023, end: 20200114
  3. REVLIMID [Suspect]
     Active Substance: LENALIDOMIDE
     Indication: Product used for unknown indication
     Dosage: 25 MG, QD, REST PERIOD
     Route: 048
     Dates: start: 20200108, end: 20200114
  4. REVLIMID [Suspect]
     Active Substance: LENALIDOMIDE
     Dosage: 20 MG, INVESTIGATOR DECISION, QAM
     Route: 048
     Dates: start: 20190917
  5. REVLIMID [Suspect]
     Active Substance: LENALIDOMIDE
     Dosage: 0 MG, REST PERIOD:
     Route: 065
     Dates: start: 20190918, end: 20190924
  6. REVLIMID [Suspect]
     Active Substance: LENALIDOMIDE
     Dosage: 20 MG, QAM
     Route: 048
     Dates: start: 20190925, end: 20191015
  7. REVLIMID [Suspect]
     Active Substance: LENALIDOMIDE
     Dosage: 20 MG, QD, REST PERIOD
     Route: 048
     Dates: start: 20191113, end: 20191119
  8. REVLIMID [Suspect]
     Active Substance: LENALIDOMIDE
     Dosage: 20 MG, QD, REST PERIOD
     Route: 048
     Dates: start: 20191023, end: 20191112
  9. REVLIMID [Suspect]
     Active Substance: LENALIDOMIDE
     Dosage: 15 MG, QAM, DOSE ADMINISTERED YES
     Route: 048
     Dates: start: 20190731, end: 20190820
  10. REVLIMID [Suspect]
     Active Substance: LENALIDOMIDE
     Dosage: 0 MG, REST PERIOD
     Route: 048
     Dates: start: 20191016, end: 20191022
  11. REVLIMID [Suspect]
     Active Substance: LENALIDOMIDE
     Dosage: 0 MG, REST PERIOD
     Route: 048
     Dates: start: 20190821, end: 20190827
  12. REVLIMID [Suspect]
     Active Substance: LENALIDOMIDE
     Dosage: 25 MG, WAS THE DOSE ADMINISTERED: NO
     Route: 048
     Dates: start: 20191211, end: 20191217
  13. REVLIMID [Suspect]
     Active Substance: LENALIDOMIDE
     Dosage: 25 MG, QDREASON FOR DOSE ADJUSTED: INVESTIGATOR DECISION
     Route: 048
     Dates: start: 20191120, end: 20191210
  14. REVLIMID [Suspect]
     Active Substance: LENALIDOMIDE
     Dosage: 25 MG, QD, WAS THE DOSE ADJUSTED FROM PREVIOUS DOSE: NO
     Route: 048
     Dates: start: 20191218, end: 20200107

REACTIONS (2)
  - Peripheral sensory neuropathy [Not Recovered/Not Resolved]
  - General physical health deterioration [Not Recovered/Not Resolved]

NARRATIVE: CASE EVENT DATE: 20200115
